FAERS Safety Report 9008649 (Version 3)
Quarter: 2013Q2

REPORT INFORMATION
  Report Type: Spontaneous
  Country: US (occurrence: US)
  Receive Date: 20130111
  Receipt Date: 20130527
  Transmission Date: 20140414
  Serious: No
  Sender: FDA-Public Use
  Company Number: US-009507513-1301USA003918

PATIENT
  Sex: Male

DRUGS (5)
  1. VICTRELIS [Suspect]
     Indication: HEPATITIS C
     Dosage: UNK
     Route: 048
     Dates: start: 20130104, end: 20130523
  2. RIBAVIRIN [Suspect]
     Indication: HEPATITIS C
     Dosage: 2 DF, TID
     Route: 048
     Dates: start: 20121206
  3. RIBAVIRIN [Suspect]
     Dosage: 1 DF, TID
     Route: 048
     Dates: end: 20130523
  4. PEGASYS [Suspect]
     Indication: HEPATITIS C
     Dosage: 180 MICROGRAM, UNK
     Dates: start: 20121206
  5. PEGASYS [Suspect]
     Dosage: 135 MICROGRAM, UNK
     Dates: end: 20130516

REACTIONS (8)
  - Gastrointestinal disorder [Unknown]
  - Nausea [Recovered/Resolved]
  - Fatigue [Unknown]
  - Nausea [Unknown]
  - Platelet count decreased [Unknown]
  - Dry mouth [Unknown]
  - Dry mouth [Unknown]
  - Thrombocytopenia [Unknown]
